FAERS Safety Report 23078202 (Version 1)
Quarter: 2023Q4

REPORT INFORMATION
  Report Type: Spontaneous
  Country: NZ (occurrence: None)
  Receive Date: 20231018
  Receipt Date: 20231018
  Transmission Date: 20240109
  Serious: Yes (Other)
  Sender: FDA-Public Use
  Company Number: 2023A230765

PATIENT
  Sex: Female

DRUGS (7)
  1. GOSERELIN [Suspect]
     Active Substance: GOSERELIN
     Indication: Breast cancer metastatic
     Route: 058
     Dates: start: 2023
  2. FULVESTRANT [Suspect]
     Active Substance: FULVESTRANT
     Indication: Breast cancer metastatic
     Route: 030
     Dates: start: 2023
  3. LETROZOLE [Concomitant]
     Active Substance: LETROZOLE
     Dates: start: 2020
  4. LETROZOLE [Concomitant]
     Active Substance: LETROZOLE
     Dates: start: 2022
  5. CAPECITABINE [Concomitant]
     Active Substance: CAPECITABINE
     Dates: start: 2017
  6. TAMOXIFEN [Concomitant]
     Active Substance: TAMOXIFEN
     Dates: start: 2010
  7. PALBOCICLIB [Concomitant]
     Active Substance: PALBOCICLIB
     Dates: start: 2020

REACTIONS (1)
  - Malignant neoplasm progression [Unknown]

NARRATIVE: CASE EVENT DATE: 20190101
